FAERS Safety Report 7680470-6 (Version None)
Quarter: 2011Q3

REPORT INFORMATION
  Report Type: 
  Country: None (occurrence: None)
  Receive Date: 20110812
  Receipt Date: 20110809
  Transmission Date: 20111222
  Serious: Yes (Hospitalization, Other)
  Sender: FDA-Public Use
  Company Number: JP-PFIZER INC-2011130491

PATIENT
  Age: 61 Year
  Sex: Female
  Weight: 41 kg

DRUGS (3)
  1. VFEND [Suspect]
     Indication: ASPERGILLOSIS
     Dosage: 150 MG, 2X/DAY
     Route: 048
     Dates: start: 20110608, end: 20110614
  2. VFEND [Suspect]
     Indication: BRONCHOPULMONARY ASPERGILLOSIS
     Dosage: 250 MG, 2X/DAY
     Route: 041
     Dates: start: 20110603, end: 20110603
  3. VFEND [Suspect]
     Dosage: 160 MG, 2X/DAY
     Route: 041
     Dates: start: 20110604, end: 20110607

REACTIONS (1)
  - HYPONATRAEMIA [None]
